FAERS Safety Report 15937806 (Version 2)
Quarter: 2020Q1

REPORT INFORMATION
  Report Type: Report from Study
  Country: US (occurrence: US)
  Receive Date: 20190208
  Receipt Date: 20200227
  Transmission Date: 20200409
  Serious: No
  Sender: FDA-Public Use
  Company Number: US-AEGERION PHARMACEUTICAL, INC-AEGR004114

PATIENT
  Age: 11 Year
  Sex: Male
  Weight: 25.85 kg

DRUGS (2)
  1. MYALEPT [Suspect]
     Active Substance: METRELEPTIN
     Indication: CONGENITAL GENERALISED LIPODYSTROPHY
     Dosage: 1.7 MG, QD
     Route: 058
     Dates: start: 20181205, end: 201901
  2. MYALEPT [Suspect]
     Active Substance: METRELEPTIN
     Dosage: UNK
     Dates: start: 2019

REACTIONS (7)
  - Therapy cessation [Recovered/Resolved]
  - Fatigue [Not Recovered/Not Resolved]
  - Pyrexia [Unknown]
  - Lymphadenopathy [Unknown]
  - Weight decreased [Not Recovered/Not Resolved]
  - Viral infection [Unknown]
  - Blood triglycerides increased [Unknown]

NARRATIVE: CASE EVENT DATE: 201901
